FAERS Safety Report 8339657-1 (Version None)
Quarter: 2012Q2

REPORT INFORMATION
  Report Type: 
  Country: None (occurrence: None)
  Receive Date: 20120502
  Receipt Date: 20120419
  Transmission Date: 20120825
  Serious: Yes (Other)
  Sender: FDA-Public Use
  Company Number: 2012P1017852

PATIENT
  Age: 65 Year
  Sex: Female

DRUGS (5)
  1. PEPCID [Suspect]
     Dosage: 20 MG;QD;PO
     Route: 048
     Dates: start: 20120402, end: 20120419
  2. MONONITRATE [Concomitant]
  3. CILNIDIPINE [Concomitant]
  4. DOXAZOSIN MESYLATE [Concomitant]
  5. MESYLATE ISOSORBIDE [Concomitant]

REACTIONS (1)
  - HAEMOLYTIC ANAEMIA [None]
